APPROVED DRUG PRODUCT: ENBUMYST
Active Ingredient: BUMETANIDE
Strength: 0.5MG/SPRAY
Dosage Form/Route: SPRAY;NASAL
Application: N219500 | Product #001
Applicant: CORSTASIS THERAPEUTICS INC
Approved: Sep 12, 2025 | RLD: Yes | RS: Yes | Type: RX

PATENTS:
Patent 12329731 | Expires: Dec 4, 2040
Patent 11260038 | Expires: Dec 4, 2040
Patent 11123319 | Expires: Dec 4, 2040